FAERS Safety Report 19560614 (Version 2)
Quarter: 2021Q3

REPORT INFORMATION
  Report Type: Spontaneous
  Country: AR (occurrence: AR)
  Receive Date: 20210716
  Receipt Date: 20210813
  Transmission Date: 20211014
  Serious: Yes (Death, Hospitalization)
  Sender: FDA-Public Use
  Company Number: AR-AUROBINDO-AUR-APL-2021-030111

PATIENT
  Age: 83 Year
  Sex: Male

DRUGS (1)
  1. BELEODAQ [Suspect]
     Active Substance: BELINOSTAT
     Indication: NON-HODGKIN^S LYMPHOMA
     Dosage: 1000 MILLIGRAM/SQ. METER, DAILY
     Route: 065
     Dates: start: 20210519, end: 2021

REACTIONS (3)
  - Lymphadenopathy [Unknown]
  - Disease progression [Fatal]
  - Hypercalcaemia [Unknown]
